FAERS Safety Report 12375349 (Version 1)
Quarter: 2016Q2

REPORT INFORMATION
  Report Type: Spontaneous
  Country: US (occurrence: US)
  Receive Date: 20160517
  Receipt Date: 20160517
  Transmission Date: 20160815
  Serious: No
  Sender: FDA-Public Use
  Company Number: US-TAKEDA-2016MPI004068

PATIENT
  Sex: Female
  Weight: 68.93 kg

DRUGS (1)
  1. NINLARO [Suspect]
     Active Substance: IXAZOMIB
     Indication: PLASMA CELL MYELOMA
     Dosage: 4 MG, QD
     Route: 048
     Dates: start: 20150603, end: 20160422

REACTIONS (8)
  - Upper respiratory tract congestion [Unknown]
  - Chest discomfort [Unknown]
  - Dyspnoea [Unknown]
  - Back pain [Unknown]
  - Nausea [Unknown]
  - Oxygen saturation decreased [Unknown]
  - Dysphonia [Unknown]
  - Bradyphrenia [Unknown]
